FAERS Safety Report 5295678-7 (Version None)
Quarter: 2007Q2

REPORT INFORMATION
  Report Type: 
  Country: None (occurrence: None)
  Receive Date: 20070410
  Receipt Date: 20070410
  Transmission Date: 20071010
  Serious: No
  Sender: FDA-Public Use
  Company Number: None

PATIENT
  Sex: Female
  Weight: 81.6475 kg

DRUGS (2)
  1. FEMCON FE CHEWABLE   .4 MG    WARNER/CHILCOTT [Suspect]
     Indication: ANAEMIA
     Dosage: 1  ONCE A DAY  PO
     Route: 048
     Dates: start: 20070405, end: 20070407
  2. FEMCON FE CHEWABLE   .4 MG    WARNER/CHILCOTT [Suspect]
     Indication: VAGINAL HAEMORRHAGE
     Dosage: 1  ONCE A DAY  PO
     Route: 048
     Dates: start: 20070405, end: 20070407

REACTIONS (2)
  - DIZZINESS [None]
  - NAUSEA [None]
